FAERS Safety Report 8395492-X (Version None)
Quarter: 2012Q2

REPORT INFORMATION
  Report Type: 
  Country: None (occurrence: None)
  Receive Date: 20120530
  Receipt Date: 20110501
  Transmission Date: 20120825
  Serious: No
  Sender: FDA-Public Use
  Company Number: US-GLAXOSMITHKLINE-A0926227A

PATIENT
  Sex: Female

DRUGS (1)
  1. VENTOLIN HFA [Suspect]
     Indication: PRODUCT USED FOR UNKNOWN INDICATION
     Route: 055

REACTIONS (6)
  - EXPIRED DRUG ADMINISTERED [None]
  - DRUG DISPENSING ERROR [None]
  - WHEEZING [None]
  - HYPERSENSITIVITY [None]
  - TREMOR [None]
  - DRUG INEFFECTIVE [None]
